FAERS Safety Report 14778484 (Version 6)
Quarter: 2022Q1

REPORT INFORMATION
  Report Type: Spontaneous
  Country: US (occurrence: US)
  Receive Date: 20180419
  Receipt Date: 20220120
  Transmission Date: 20220423
  Serious: Yes (Other)
  Sender: FDA-Public Use
  Company Number: US-AMGEN-USASP2017166435

PATIENT
  Age: 79 Year
  Sex: Female

DRUGS (4)
  1. XGEVA [Suspect]
     Active Substance: DENOSUMAB
     Indication: Breast cancer metastatic
     Dosage: UNK, Q4WK
     Route: 065
     Dates: start: 2015
  2. XGEVA [Suspect]
     Active Substance: DENOSUMAB
     Indication: Metastases to bone
     Dosage: UNK UNK, Q3MO
     Route: 065
  3. XGEVA [Suspect]
     Active Substance: DENOSUMAB
     Indication: Breast cancer
     Dosage: UNK, QMO
     Route: 065
  4. FEMARA [Concomitant]
     Active Substance: LETROZOLE

REACTIONS (5)
  - Osteonecrosis of jaw [Recovered/Resolved]
  - Tooth disorder [Recovering/Resolving]
  - Malaise [Unknown]
  - Tooth fracture [Unknown]
  - Toothache [Not Recovered/Not Resolved]

NARRATIVE: CASE EVENT DATE: 20180101
